FAERS Safety Report 7184962-8 (Version None)
Quarter: 2010Q4

REPORT INFORMATION
  Report Type: 
  Country: None (occurrence: None)
  Receive Date: 20101222
  Receipt Date: 20101215
  Transmission Date: 20110411
  Serious: Yes (Disabling)
  Sender: FDA-Public Use
  Company Number: AU-MERCK-1009USA03298

PATIENT
  Age: 58 Year
  Sex: Female

DRUGS (2)
  1. ZETIA [Suspect]
     Route: 065
  2. CRESTOR [Suspect]
     Route: 065
     Dates: start: 20090301, end: 20100417

REACTIONS (8)
  - AMNESIA [None]
  - AUTOIMMUNE DISORDER [None]
  - CARDIAC FLUTTER [None]
  - DYSGRAPHIA [None]
  - FATIGUE [None]
  - LIFE EXPECTANCY SHORTENED [None]
  - MENTAL IMPAIRMENT [None]
  - WEIGHT INCREASED [None]
